FAERS Safety Report 13692714 (Version 1)
Quarter: 2017Q2

REPORT INFORMATION
  Report Type: Spontaneous
  Country: US (occurrence: US)
  Receive Date: 20170627
  Receipt Date: 20170627
  Transmission Date: 20170830
  Serious: No
  Sender: FDA-Public Use
  Company Number: US-PFIZER INC-2017275605

PATIENT
  Age: 50 Year
  Sex: Male

DRUGS (1)
  1. SUTENT [Suspect]
     Active Substance: SUNITINIB MALATE
     Indication: RENAL CANCER
     Dosage: 37.5 MG, UNK
     Dates: start: 20160219

REACTIONS (7)
  - Diarrhoea [Unknown]
  - Hair colour changes [Unknown]
  - Weight decreased [Unknown]
  - Abdominal discomfort [Unknown]
  - Dysgeusia [Unknown]
  - Decreased appetite [Unknown]
  - Memory impairment [Unknown]
